FAERS Safety Report 18580404 (Version 1)
Quarter: 2020Q4

REPORT INFORMATION
  Report Type: Spontaneous
  Country: US (occurrence: US)
  Receive Date: 20201204
  Receipt Date: 20201204
  Transmission Date: 20210114
  Serious: No
  Sender: FDA-Public Use
  Company Number: US-PFIZER INC-2020477379

PATIENT
  Age: 64 Year
  Sex: Female

DRUGS (1)
  1. IBRANCE [Suspect]
     Active Substance: PALBOCICLIB
     Indication: BREAST CANCER FEMALE
     Dosage: 125 MG, CYCLIC (125 MG QD (ONCE A DAY) X 21 DAYS)
     Dates: start: 20201020

REACTIONS (5)
  - Fatigue [Not Recovered/Not Resolved]
  - White blood cell count decreased [Not Recovered/Not Resolved]
  - Dry skin [Not Recovered/Not Resolved]
  - Pain in extremity [Not Recovered/Not Resolved]
  - Alopecia [Not Recovered/Not Resolved]
